FAERS Safety Report 12447259 (Version 1)
Quarter: 2016Q2

REPORT INFORMATION
  Report Type: Spontaneous
  Country: US (occurrence: US)
  Receive Date: 20160608
  Receipt Date: 20160608
  Transmission Date: 20160815
  Serious: Yes (Death)
  Sender: FDA-Public Use
  Company Number: US-CELGENEUS-USA-2016056852

PATIENT

DRUGS (10)
  1. VIDAZA [Suspect]
     Active Substance: AZACITIDINE
     Indication: DIFFUSE LARGE B-CELL LYMPHOMA
     Dosage: 15-35 MG/M2
     Route: 041
  2. BUSULFAN. [Suspect]
     Active Substance: BUSULFAN
     Indication: DIFFUSE LARGE B-CELL LYMPHOMA
     Dosage: AUC 4000 UM/MIN
     Route: 041
  3. PHENYTOIN. [Concomitant]
     Active Substance: PHENYTOIN
     Indication: SUPPORTIVE CARE
     Dosage: 300-600 MG
     Route: 065
  4. SUPERSATURATED CALCIUM/PHOSPHATE [Concomitant]
     Indication: DENTAL DISORDER PROPHYLAXIS
     Dosage: 60 MILLIGRAM/SQ. METER
     Route: 065
  5. PALIFERMIN [Concomitant]
     Active Substance: PALIFERMIN
     Indication: DENTAL DISORDER PROPHYLAXIS
     Route: 065
  6. MELPHALAN [Suspect]
     Active Substance: MELPHALAN
     Indication: DIFFUSE LARGE B-CELL LYMPHOMA
     Route: 065
  7. DEXAMETHASONE. [Concomitant]
     Active Substance: DEXAMETHASONE
     Indication: SUPPORTIVE CARE
     Route: 041
  8. GEMCITABINE [Suspect]
     Active Substance: GEMCITABINE\GEMCITABINE HYDROCHLORIDE
     Indication: DIFFUSE LARGE B-CELL LYMPHOMA
     Dosage: 16 MILLIGRAM
     Route: 050
  9. VORINOSTAT [Suspect]
     Active Substance: VORINOSTAT
     Indication: DIFFUSE LARGE B-CELL LYMPHOMA
     Route: 048
  10. GLUTAMINE [Concomitant]
     Active Substance: GLUTAMINE
     Indication: DENTAL DISORDER PROPHYLAXIS
     Route: 065

REACTIONS (1)
  - Diffuse large B-cell lymphoma [Fatal]
